FAERS Safety Report 25602866 (Version 1)
Quarter: 2025Q3

REPORT INFORMATION
  Report Type: Spontaneous
  Country: GB (occurrence: GB)
  Receive Date: 20250724
  Receipt Date: 20250724
  Transmission Date: 20251020
  Serious: Yes (Life-Threatening, Hospitalization, Other)
  Sender: B. BRAUN MEDICAL INC.
  Company Number: GB-BBM-GB-BBM-202502794

PATIENT
  Age: 27 Year
  Sex: Female

DRUGS (2)
  1. LIDOCAINE [Suspect]
     Active Substance: LIDOCAINE
     Indication: Local anaesthesia
  2. SALINE [Suspect]
     Active Substance: SODIUM CHLORIDE

REACTIONS (2)
  - Arterial haemorrhage [Recovered/Resolved]
  - Maternal exposure during delivery [Recovered/Resolved]
